FAERS Safety Report 10568645 (Version 8)
Quarter: 2021Q1

REPORT INFORMATION
  Report Type: Report from Study
  Country: US (occurrence: US)
  Receive Date: 20141106
  Receipt Date: 20210104
  Transmission Date: 20210419
  Serious: Yes (Hospitalization, Other)
  Sender: FDA-Public Use
  Company Number: US-SA-2014SA007995

PATIENT

DRUGS (2)
  1. TERIFLUNOMIDE. [Suspect]
     Active Substance: TERIFLUNOMIDE
     Dosage: 14 MG, QD
     Route: 048
     Dates: start: 20160505
  2. TERIFLUNOMIDE. [Suspect]
     Active Substance: TERIFLUNOMIDE
     Indication: MULTIPLE SCLEROSIS
     Dosage: 14 MG,QD
     Route: 048
     Dates: start: 20131216

REACTIONS (24)
  - Impaired gastric emptying [Unknown]
  - Diarrhoea [Unknown]
  - Fatigue [Not Recovered/Not Resolved]
  - Ill-defined disorder [Unknown]
  - Panic attack [Unknown]
  - Asthenia [Unknown]
  - Nasopharyngitis [Unknown]
  - Intervertebral disc protrusion [Unknown]
  - Blood glucose increased [Unknown]
  - Temperature intolerance [Unknown]
  - Bipolar disorder [Unknown]
  - Meniscus injury [Unknown]
  - Arthroscopy [Unknown]
  - Hypoaesthesia [Not Recovered/Not Resolved]
  - Pain [Unknown]
  - Memory impairment [Unknown]
  - Hypoaesthesia [Unknown]
  - Myocardial necrosis marker increased [Unknown]
  - Product dose omission issue [Unknown]
  - Joint dislocation [Unknown]
  - Fall [Unknown]
  - Nasal congestion [Unknown]
  - Nail bed infection [Unknown]
  - Depression [Not Recovered/Not Resolved]

NARRATIVE: CASE EVENT DATE: 201502
